FAERS Safety Report 7479556-0 (Version None)
Quarter: 2011Q2

REPORT INFORMATION
  Report Type: 
  Country: None (occurrence: None)
  Receive Date: 20110513
  Receipt Date: 20110509
  Transmission Date: 20111010
  Serious: Yes (Hospitalization, Other)
  Sender: FDA-Public Use
  Company Number: DE-ABBOTT-11P-062-0724548-00

PATIENT
  Age: 62 Year
  Sex: Male
  Weight: 68 kg

DRUGS (3)
  1. HUMIRA [Suspect]
     Indication: CROHN'S DISEASE
     Dosage: WEEK 0; ONCE
     Route: 058
     Dates: start: 20100601, end: 20100601
  2. HUMIRA [Suspect]
     Route: 058
  3. HUMIRA [Suspect]
     Dosage: WEEK 2
     Route: 058

REACTIONS (4)
  - SIMPLE PARTIAL SEIZURES [None]
  - CEREBELLAR INFARCTION [None]
  - CEREBRAL ARTERY EMBOLISM [None]
  - CENTRAL NERVOUS SYSTEM LESION [None]
